FAERS Safety Report 15178314 (Version 3)
Quarter: 2018Q4

REPORT INFORMATION
  Report Type: Spontaneous
  Country: DE (occurrence: DE)
  Receive Date: 20180721
  Receipt Date: 20181025
  Transmission Date: 20190204
  Serious: Yes (Hospitalization)
  Sender: FDA-Public Use
  Company Number: DE-SUN PHARMACEUTICAL INDUSTRIES LTD-2018US-178975

PATIENT

DRUGS (7)
  1. JODID 200 [Concomitant]
     Indication: PRODUCT USED FOR UNKNOWN INDICATION
     Dosage: 1-0-0
     Route: 065
  2. OMEPRAZOL 40MG [Concomitant]
     Indication: PRODUCT USED FOR UNKNOWN INDICATION
     Dosage: 1-0-0
     Route: 065
  3. SYNTARIS NS [Concomitant]
     Indication: PRODUCT USED FOR UNKNOWN INDICATION
     Dosage: BEI BEDARF ()
     Route: 065
  4. PROGESTAN [Concomitant]
     Active Substance: PROGESTERONE
     Indication: PRODUCT USED FOR UNKNOWN INDICATION
     Dosage: 0-0-1 ()
     Route: 065
  5. CHLORPROTHIXEN 45MG [Concomitant]
     Indication: PRODUCT USED FOR UNKNOWN INDICATION
     Dosage: UNK
     Route: 065
  6. VENLAFAXINE [Suspect]
     Active Substance: VENLAFAXINE HYDROCHLORIDE
     Indication: PRODUCT USED FOR UNKNOWN INDICATION
     Dosage: 0-0-1
     Route: 065
     Dates: start: 20180411, end: 20180515
  7. BUDESONID [Concomitant]
     Active Substance: BUDESONIDE
     Indication: PRODUCT USED FOR UNKNOWN INDICATION
     Dosage: BEI BEDARF
     Route: 065

REACTIONS (17)
  - Limb discomfort [Unknown]
  - Myalgia [Unknown]
  - Anxiety [Unknown]
  - Somatic symptom disorder [Unknown]
  - Sleep disorder [Unknown]
  - Hypoaesthesia [Unknown]
  - Paraesthesia [Unknown]
  - Areflexia [Unknown]
  - Muscular weakness [Unknown]
  - Weight decreased [Unknown]
  - Hypoaesthesia oral [Unknown]
  - Vulvovaginal discomfort [Unknown]
  - Gait disturbance [Unknown]
  - Asthenia [Unknown]
  - Urinary tract discomfort [Unknown]
  - Muscle spasticity [Unknown]
  - Language disorder [Unknown]

NARRATIVE: CASE EVENT DATE: 20180411
